FAERS Safety Report 17534195 (Version 1)
Quarter: 2020Q1

REPORT INFORMATION
  Report Type: Spontaneous
  Country: US (occurrence: US)
  Receive Date: 20200312
  Receipt Date: 20200312
  Transmission Date: 20200409
  Serious: Yes (Other)
  Sender: FDA-Public Use
  Company Number: NVSC2020US065166

PATIENT
  Age: 74 Year
  Sex: Female

DRUGS (1)
  1. BEOVU [Suspect]
     Active Substance: BROLUCIZUMAB-DBLL
     Indication: NEOVASCULAR AGE-RELATED MACULAR DEGENERATION
     Dosage: 6 MG, QMO
     Route: 047
     Dates: start: 20200107

REACTIONS (6)
  - Ocular hyperaemia [Recovering/Resolving]
  - Foreign body sensation in eyes [Recovering/Resolving]
  - Eye pain [Recovering/Resolving]
  - Eye inflammation [Recovering/Resolving]
  - Photopsia [Recovering/Resolving]
  - Vision blurred [Recovering/Resolving]

NARRATIVE: CASE EVENT DATE: 20200119
